FAERS Safety Report 23708355 (Version 2)
Quarter: 2024Q2

REPORT INFORMATION
  Report Type: Spontaneous
  Country: JP (occurrence: JP)
  Receive Date: 20240404
  Receipt Date: 20240618
  Transmission Date: 20240716
  Serious: Yes (Hospitalization)
  Sender: FDA-Public Use
  Company Number: JP-TEVA-VS-3177224

PATIENT
  Age: 90 Year
  Sex: Male
  Weight: 52.1 kg

DRUGS (17)
  1. LANSOPRAZOLE [Suspect]
     Active Substance: LANSOPRAZOLE
     Indication: Gastrooesophageal reflux disease
     Route: 065
  2. LANSOPRAZOLE [Suspect]
     Active Substance: LANSOPRAZOLE
     Indication: Gastrooesophageal reflux disease
     Route: 065
  3. CLARITHROMYCIN [Concomitant]
     Active Substance: CLARITHROMYCIN
     Indication: Helicobacter infection
     Route: 065
  4. HEPARIN [Suspect]
     Active Substance: HEPARIN SODIUM
     Indication: Anticoagulant therapy
     Dosage: 4000 UNITS
     Route: 042
  5. DARBEPOETIN ALFA [Suspect]
     Active Substance: DARBEPOETIN ALFA
     Indication: Nephrogenic anaemia
     Dosage: INITIAL DOSE NOT STATED
     Route: 042
  6. DOXAZOSIN [Concomitant]
     Active Substance: DOXAZOSIN MESYLATE
     Indication: Hypertension
     Route: 065
  7. CARVEDILOL [Concomitant]
     Active Substance: CARVEDILOL
     Indication: Hypertension
     Route: 065
  8. AMLODIPINE [Concomitant]
     Active Substance: AMLODIPINE BESYLATE
     Indication: Hypertension
     Route: 065
  9. Famotidine? [Concomitant]
     Indication: Product used for unknown indication
     Route: 065
  10. IRON SUCROSE [Suspect]
     Active Substance: IRON SUCROSE
     Indication: Nephrogenic anaemia
     Route: 065
  11. TELMISARTAN [Concomitant]
     Active Substance: TELMISARTAN
     Indication: Hypertension
     Route: 065
  12. NIFEDIPINE [Concomitant]
     Active Substance: NIFEDIPINE
     Indication: Hypertension
     Route: 065
  13. CALCIUM CARBONATE [Concomitant]
     Active Substance: CALCIUM CARBONATE
     Indication: Hyperphosphataemia
     Route: 065
  14. AMOXICILLIN [Concomitant]
     Active Substance: AMOXICILLIN
     Indication: Helicobacter infection
     Route: 065
  15. ESOMEPRAZOLE [Suspect]
     Active Substance: ESOMEPRAZOLE
     Indication: Gastrooesophageal reflux disease
     Route: 065
  16. REBAMIPIDE [Concomitant]
     Active Substance: REBAMIPIDE
     Indication: Product used for unknown indication
     Route: 065
  17. NAFAMOSTAT MESYLATE [Concomitant]
     Active Substance: NAFAMOSTAT MESYLATE
     Indication: Anticoagulant therapy
     Route: 065

REACTIONS (7)
  - Nephrogenic anaemia [Unknown]
  - Gastrointestinal haemorrhage [Not Recovered/Not Resolved]
  - Drug ineffective [Unknown]
  - Iron deficiency anaemia [Not Recovered/Not Resolved]
  - Hypergastrinaemia [Not Recovered/Not Resolved]
  - Gastric polyps [Not Recovered/Not Resolved]
  - Condition aggravated [Not Recovered/Not Resolved]
